FAERS Safety Report 10924456 (Version 1)
Quarter: 2015Q1

REPORT INFORMATION
  Report Type: Spontaneous
  Country: US (occurrence: None)
  Receive Date: 20150129
  Receipt Date: 20150129
  Transmission Date: 20150721
  Serious: Yes (Hospitalization)
  Sender: FDA-Public Use
  Company Number: 076859

PATIENT
  Sex: Female

DRUGS (5)
  1. RAMIPRIL (RAMIPRIL) [Concomitant]
     Active Substance: RAMIPRIL
  2. KEPPRA XR [Suspect]
     Active Substance: LEVETIRACETAM
     Indication: SEIZURE
     Dates: end: 2013
  3. ABILIFY [Concomitant]
     Active Substance: ARIPIPRAZOLE
  4. TOPROL (METOPROLOL SUCCINATE) [Concomitant]
  5. PROZAC (FLUOXETINE) [Concomitant]

REACTIONS (2)
  - Drug dose omission [None]
  - Seizure [None]

NARRATIVE: CASE EVENT DATE: 2013
